FAERS Safety Report 10585700 (Version 1)
Quarter: 2014Q4

REPORT INFORMATION
  Report Type: Spontaneous
  Country: AT (occurrence: AT)
  Receive Date: 20141114
  Receipt Date: 20141114
  Transmission Date: 20150529
  Serious: Yes (Other)
  Sender: FDA-Public Use
  Company Number: AT-BAUSCH-BL-2014-008431

PATIENT
  Age: 24 Year
  Sex: Male

DRUGS (1)
  1. VERTEPORFIN [Suspect]
     Active Substance: VERTEPORFIN
     Indication: HAEMANGIOBLASTOMA
     Dosage: TOTAL DOSE:6.4 ML

REACTIONS (4)
  - Retinal detachment [Recovered/Resolved]
  - Off label use [Unknown]
  - Visual impairment [Recovering/Resolving]
  - Vitreous haemorrhage [Recovered/Resolved]
